FAERS Safety Report 4294549-2 (Version None)
Quarter: 2004Q1

REPORT INFORMATION
  Report Type: 
  Country: None (occurrence: None)
  Receive Date: 20040213
  Receipt Date: 20040206
  Transmission Date: 20041129
  Serious: Yes (Other)
  Sender: FDA-Public Use
  Company Number: PHNU2004DE00822

PATIENT
  Sex: Female

DRUGS (1)
  1. STARLIX [Suspect]
     Indication: DIABETES MELLITUS
     Dosage: 60 MG/D
     Route: 048
     Dates: start: 20020101

REACTIONS (2)
  - MYALGIA [None]
  - MYOSITIS [None]
